FAERS Safety Report 19891411 (Version 2)
Quarter: 2021Q4

REPORT INFORMATION
  Report Type: Spontaneous
  Country: DE (occurrence: CN)
  Receive Date: 20210928
  Receipt Date: 20211008
  Transmission Date: 20220303
  Serious: Yes (Hospitalization)
  Sender: FDA-Public Use
  Company Number: CN-MERCK HEALTHCARE KGAA-9266632

PATIENT
  Age: 68 Year
  Sex: Male
  Weight: 62 kg

DRUGS (6)
  1. ERBITUX [Suspect]
     Active Substance: CETUXIMAB
     Indication: Colorectal cancer metastatic
     Dosage: 696 MG, UNKNOWN
     Route: 041
     Dates: start: 20210719
  2. ERBITUX [Suspect]
     Active Substance: CETUXIMAB
     Dosage: 435 MG, UNKNOWN
     Route: 041
     Dates: start: 20210901
  3. OXALIPLATIN [Suspect]
     Active Substance: OXALIPLATIN
     Indication: Colorectal cancer metastatic
     Dosage: 148 MG, DAILY
     Route: 041
     Dates: start: 20210719
  4. LEUCOVORIN CALCIUM [Suspect]
     Active Substance: LEUCOVORIN CALCIUM
     Indication: Colorectal cancer metastatic
     Dosage: .696 G, DAILY
     Route: 041
     Dates: start: 20210719
  5. FLUOROURACIL [Suspect]
     Active Substance: FLUOROURACIL
     Indication: Colorectal cancer metastatic
     Dosage: 0.696 G, UNKNOWN
     Route: 042
     Dates: start: 20210719
  6. FLUOROURACIL [Suspect]
     Active Substance: FLUOROURACIL
     Dosage: LYOPHILIZED POWDER /0.25G
     Route: 042
     Dates: start: 20210719

REACTIONS (1)
  - Anaemia [Not Recovered/Not Resolved]

NARRATIVE: CASE EVENT DATE: 20210907
